FAERS Safety Report 9800863 (Version 3)
Quarter: 2014Q1

REPORT INFORMATION
  Report Type: Report from Study
  Country: JP (occurrence: JP)
  Receive Date: 20140107
  Receipt Date: 20140224
  Transmission Date: 20141002
  Serious: Yes (Hospitalization)
  Sender: FDA-Public Use
  Company Number: JP-ROCHE-1325303

PATIENT
  Age: 67 Year
  Sex: Female
  Weight: 44.6 kg

DRUGS (7)
  1. TRASTUZUMAB EMTANSINE [Suspect]
     Indication: HER-2 POSITIVE GASTRIC CANCER
     Dosage: LAST DOSE (103MG) PRIOR TO SAE 15/NOV/2013
     Route: 042
     Dates: start: 20121225
  2. FERROMIA [Concomitant]
     Indication: ANAEMIA
     Route: 065
     Dates: start: 20110830
  3. BIOFERMIN R [Concomitant]
     Indication: DIARRHOEA
     Route: 065
     Dates: start: 20130407
  4. FUROSEMIDE [Concomitant]
     Indication: ASCITES
     Route: 065
     Dates: start: 20131123
  5. MYSER [Concomitant]
     Indication: RASH
     Route: 065
     Dates: start: 20131025
  6. URSODEOXYCHOLIC ACID [Concomitant]
     Indication: BLOOD BILIRUBIN INCREASED
     Route: 065
     Dates: start: 20131206, end: 20131212
  7. ASPARA POTASSIUM [Concomitant]
     Indication: HYPOKALAEMIA
     Route: 065
     Dates: start: 20131207, end: 20131212

REACTIONS (1)
  - Hepatic encephalopathy [Recovered/Resolved]
